FAERS Safety Report 15826832 (Version 3)
Quarter: 2019Q1

REPORT INFORMATION
  Report Type: Report from Study
  Country: CA (occurrence: CA)
  Receive Date: 20190115
  Receipt Date: 20190311
  Transmission Date: 20190417
  Serious: Yes (Other)
  Sender: FDA-Public Use
  Company Number: CA-SA-2019SA007119

PATIENT
  Age: 62 Year

DRUGS (2)
  1. NAPROSYNE [Suspect]
     Active Substance: NAPROXEN
  2. TERIFLUNOMIDE. [Suspect]
     Active Substance: TERIFLUNOMIDE
     Dosage: UNK
     Route: 048
     Dates: start: 201409, end: 20190109

REACTIONS (3)
  - Squamous cell carcinoma [Unknown]
  - Hypertensive crisis [Unknown]
  - Thyroid mass [Unknown]

NARRATIVE: CASE EVENT DATE: 20181203
